FAERS Safety Report 10396592 (Version 1)
Quarter: 2014Q1

REPORT INFORMATION
  Report Type: Spontaneous
  Country: US (occurrence: None)
  Receive Date: 20130815
  Receipt Date: 20130815
  Transmission Date: 20141002
  Serious: Yes (Other)
  Sender: FDA-Public Use
  Company Number: ADR-2013-00451

PATIENT
  Age: 5 Year
  Sex: Male

DRUGS (1)
  1. GABLOFEN [Suspect]
     Indication: CEREBRAL PALSY

REACTIONS (4)
  - Back pain [None]
  - Implant site pain [None]
  - Implant site extravasation [None]
  - Abasia [None]
